FAERS Safety Report 7409153-4 (Version None)
Quarter: 2011Q2

REPORT INFORMATION
  Report Type: 
  Country: None (occurrence: None)
  Receive Date: 20110412
  Receipt Date: 20110406
  Transmission Date: 20111010
  Serious: Yes (Hospitalization)
  Sender: FDA-Public Use
  Company Number: JP-ROCHE-767627

PATIENT
  Sex: Female
  Weight: 53.5 kg

DRUGS (7)
  1. VOLTAREN [Concomitant]
     Dosage: SINGLE USE BEGINNING OF DOSAGE DAY: TRIAL PREINITIATION
     Route: 054
  2. KETOPROFEN [Concomitant]
     Dosage: SINGLE USE BEGINNING OF DOSAGE DAY: TRIAL PREINITIATION, FORM: TAPE
     Route: 061
  3. OCRELIZUMAB [Suspect]
     Indication: RHEUMATOID ARTHRITIS
     Route: 042
     Dates: start: 20090930, end: 20091014
  4. CELECOXIB [Concomitant]
     Route: 048
     Dates: start: 20110218
  5. TOCILIZUMAB [Suspect]
     Indication: RHEUMATOID ARTHRITIS
     Route: 042
     Dates: start: 20101022, end: 20110218
  6. SELBEX [Concomitant]
     Dosage: BEGINNING OF DOSAGE DAY: TRIAL PREINITIATION
     Route: 048
  7. CYTOTEC [Concomitant]
     Dosage: BEGINNING OF DOSAGE DAY: TRIAL PREINITIATION
     Route: 048

REACTIONS (2)
  - PNEUMONIA [None]
  - PLEURAL EFFUSION [None]
